FAERS Safety Report 5595376-6 (Version None)
Quarter: 2008Q1

REPORT INFORMATION
  Report Type: 
  Country: None (occurrence: None)
  Receive Date: 20080117
  Receipt Date: 20080108
  Transmission Date: 20080703
  Serious: Yes (Other)
  Sender: FDA-Public Use
  Company Number: US-GILEAD-2007-0013853

PATIENT
  Sex: Female
  Weight: 85.806 kg

DRUGS (9)
  1. LETAIRIS [Suspect]
     Indication: PULMONARY HYPERTENSION
     Route: 048
     Dates: start: 20070816, end: 20070924
  2. COUMADIN [Concomitant]
     Route: 048
  3. FOSINOPRIL SODIUM [Concomitant]
     Route: 048
  4. LASIX [Concomitant]
     Route: 048
  5. LIPITOR [Concomitant]
     Route: 048
  6. MIRAPEX [Concomitant]
     Route: 048
  7. SYNTHROID [Concomitant]
     Route: 048
  8. TOPROL LX [Concomitant]
     Route: 048
  9. SILDENAFIL CITRATE [Concomitant]
     Route: 048

REACTIONS (3)
  - DYSPNOEA [None]
  - OEDEMA PERIPHERAL [None]
  - SINUSITIS [None]
